FAERS Safety Report 21018754 (Version 1)
Quarter: 2022Q2

REPORT INFORMATION
  Report Type: Spontaneous
  Country: IT (occurrence: IT)
  Receive Date: 20220628
  Receipt Date: 20220628
  Transmission Date: 20220720
  Serious: Yes (Hospitalization)
  Sender: FDA-Public Use
  Company Number: IT-MYLANLABS-2022M1048793

PATIENT
  Age: 70 Year
  Sex: Male

DRUGS (9)
  1. LEVOFLOXACIN [Suspect]
     Active Substance: LEVOFLOXACIN
     Indication: Antibiotic therapy
     Dosage: 750 MILLIGRAM, QD
     Route: 065
     Dates: start: 2020
  2. PIPERACILLIN SODIUM\TAZOBACTAM SODIUM [Suspect]
     Active Substance: PIPERACILLIN SODIUM\TAZOBACTAM SODIUM
     Indication: Antibiotic therapy
     Dosage: UNK (PIPERACILLIN/TAZOBACTAM: 4G/500MG THREE TIMES A DAY)
     Route: 065
     Dates: start: 202002
  3. PIPERACILLIN SODIUM\TAZOBACTAM SODIUM [Suspect]
     Active Substance: PIPERACILLIN SODIUM\TAZOBACTAM SODIUM
     Indication: Pneumonitis
  4. DOXORUBICIN [Suspect]
     Active Substance: DOXORUBICIN
     Indication: Liposarcoma metastatic
     Dosage: 75 MILLIGRAM/SQ. METER, CYCLE
     Route: 065
     Dates: start: 2020
  5. DOXORUBICIN [Suspect]
     Active Substance: DOXORUBICIN
     Indication: Metastases to lung
  6. ACETAMINOPHEN [Concomitant]
     Active Substance: ACETAMINOPHEN
     Indication: Back pain
     Dosage: 500 MILLIGRAM, QD
     Route: 065
     Dates: start: 2020
  7. ACETAMINOPHEN [Concomitant]
     Active Substance: ACETAMINOPHEN
     Indication: Pain
  8. CODEINE [Concomitant]
     Active Substance: CODEINE
     Indication: Back pain
     Dosage: 30 MILLIGRAM, QD
     Route: 065
     Dates: start: 2020
  9. CODEINE [Concomitant]
     Active Substance: CODEINE
     Indication: Pain

REACTIONS (1)
  - Pneumothorax [Recovering/Resolving]

NARRATIVE: CASE EVENT DATE: 20200101
